FAERS Safety Report 4282972-1 (Version None)
Quarter: 2004Q1

REPORT INFORMATION
  Report Type: 
  Country: None (occurrence: None)
  Receive Date: 20040130
  Receipt Date: 20040121
  Transmission Date: 20041129
  Serious: Yes (Other)
  Sender: FDA-Public Use
  Company Number: PHBS2004NZ01132

PATIENT
  Age: 45 Year
  Sex: Male

DRUGS (2)
  1. CICLOSPORIN [Suspect]
     Indication: RENAL TRANSPLANT
     Route: 065
  2. MYCOPHENOLATE MOFETIL [Suspect]

REACTIONS (8)
  - CYTOMEGALOVIRUS INFECTION [None]
  - DIABETES MELLITUS [None]
  - MASS EXCISION [None]
  - PAIN [None]
  - PHAEHYPHOMYCOSIS [None]
  - SKIN GRAFT [None]
  - SUBCUTANEOUS NODULE [None]
  - URINARY TRACT OBSTRUCTION [None]
